FAERS Safety Report 5297231-8 (Version None)
Quarter: 2007Q2

REPORT INFORMATION
  Report Type: 
  Country: None (occurrence: None)
  Receive Date: 20070416
  Receipt Date: 20070404
  Transmission Date: 20071010
  Serious: Yes (Death)
  Sender: FDA-Public Use
  Company Number: JP-JNJFOC-20070104513

PATIENT
  Sex: Male
  Weight: 50 kg

DRUGS (9)
  1. REMICADE [Suspect]
     Route: 042
  2. REMICADE [Suspect]
     Indication: RHEUMATOID ARTHRITIS
     Route: 042
  3. PREDONINE [Suspect]
     Indication: RHEUMATOID ARTHRITIS
     Route: 048
  4. RHEUMATREX [Suspect]
     Indication: RHEUMATOID ARTHRITIS
     Route: 048
  5. ISONIAZID [Suspect]
     Indication: ANTIBIOTIC PROPHYLAXIS
     Route: 048
  6. OSTELUC [Suspect]
     Indication: RHEUMATOID ARTHRITIS
     Route: 048
  7. CYTOTEC [Suspect]
     Indication: GASTROINTESTINAL DISORDER THERAPY
     Dosage: TOTAL DAILY DOSE:  600 RG
     Route: 048
  8. NEUROTROPIN [Suspect]
     Indication: PAIN
     Dosage: TOTAL DAILY DOSE:  12 UT
     Route: 048
  9. AZULENE GLUTAMINE [Suspect]
     Indication: GASTROINTESTINAL DISORDER THERAPY
     Route: 048

REACTIONS (2)
  - BLOOD PRESSURE DECREASED [None]
  - INTERSTITIAL LUNG DISEASE [None]
